FAERS Safety Report 21844676 (Version 1)
Quarter: 2023Q1

REPORT INFORMATION
  Report Type: Spontaneous
  Country: US (occurrence: None)
  Receive Date: 20230110
  Receipt Date: 20230110
  Transmission Date: 20230417
  Serious: Yes (Hospitalization)
  Sender: FDA-Public Use
  Company Number: None

PATIENT
  Age: 87 Year
  Sex: Male

DRUGS (1)
  1. HYDROXYUREA [Suspect]
     Active Substance: HYDROXYUREA
     Indication: Polycythaemia
     Dosage: FREQUENCY : DAILY;?
     Route: 048
     Dates: start: 20160721

REACTIONS (2)
  - Cough [None]
  - Pain [None]

NARRATIVE: CASE EVENT DATE: 20220615
